FAERS Safety Report 7245150-X (Version None)
Quarter: 2011Q1

REPORT INFORMATION
  Report Type: 
  Country: None (occurrence: None)
  Receive Date: 20110118
  Receipt Date: 20110106
  Transmission Date: 20110831
  Serious: Yes (Death, Hospitalization)
  Sender: FDA-Public Use
  Company Number: 017190

PATIENT
  Sex: Male
  Weight: 85 kg

DRUGS (4)
  1. PURINETHOL [Concomitant]
  2. CERTOLIZUMAB PEGOL (CERTOLIZUMAB PEGOL) [Suspect]
     Indication: CROHN'S DISEASE
     Dosage: (400 MG 1X/2 WEEKS SUBCUTANEOUS), (400 MG 1X/MONTH SUBCUTANEOUS)
     Route: 058
     Dates: start: 20041025
  3. RENITEC /00574901/ [Concomitant]
  4. PARACETAMOL [Concomitant]

REACTIONS (20)
  - ACUTE CORONARY SYNDROME [None]
  - PCO2 DECREASED [None]
  - BLOOD BICARBONATE DECREASED [None]
  - CARBON DIOXIDE DECREASED [None]
  - PNEUMONIA [None]
  - WHITE BLOOD CELL COUNT DECREASED [None]
  - BACK PAIN [None]
  - ASPARTATE AMINOTRANSFERASE INCREASED [None]
  - ACUTE MYOCARDIAL INFARCTION [None]
  - CROHN'S DISEASE [None]
  - CARDIAC ARREST [None]
  - PO2 DECREASED [None]
  - CONDITION AGGRAVATED [None]
  - RASH [None]
  - BLOOD PRESSURE DIASTOLIC DECREASED [None]
  - OXYGEN SATURATION DECREASED [None]
  - ABDOMINAL PAIN [None]
  - BASE EXCESS DECREASED [None]
  - RENAL FAILURE ACUTE [None]
  - CARDIOGENIC SHOCK [None]
